FAERS Safety Report 7593959-5 (Version None)
Quarter: 2011Q3

REPORT INFORMATION
  Report Type: 
  Country: None (occurrence: None)
  Receive Date: 20110706
  Receipt Date: 20110630
  Transmission Date: 20111222
  Serious: Yes (Other)
  Sender: FDA-Public Use
  Company Number: US-PFIZER INC-2011130528

PATIENT
  Sex: Male
  Weight: 36.281 kg

DRUGS (3)
  1. LORATADINE [Concomitant]
     Dosage: 10 MG DAILY
  2. LISDEXAMFETAMINE DIMESYLATE [Concomitant]
     Indication: ATTENTION DEFICIT/HYPERACTIVITY DISORDER
     Dosage: 30 MG DAILY
     Route: 048
     Dates: start: 20110201
  3. SERTRALINE HYDROCHLORIDE [Suspect]
     Indication: ANXIETY
     Dosage: 25 MG DAILY
     Route: 048
     Dates: start: 20070101

REACTIONS (7)
  - DRUG INEFFECTIVE [None]
  - TREMOR [None]
  - MOOD ALTERED [None]
  - VOMITING [None]
  - CRYING [None]
  - BREATH HOLDING [None]
  - ANXIETY [None]
